FAERS Safety Report 8545573-2 (Version None)
Quarter: 2012Q3

REPORT INFORMATION
  Report Type: 
  Country: None (occurrence: None)
  Receive Date: 20120727
  Receipt Date: 20111028
  Transmission Date: 20120928
  Serious: No
  Sender: FDA-Public Use
  Company Number: US-ASTRAZENECA-2011SE65774

PATIENT
  Age: 37 Year
  Sex: Female

DRUGS (4)
  1. SEROQUEL XR [Suspect]
     Dosage: HALF TABLET
     Route: 048
  2. SEROQUEL XR [Suspect]
     Dosage: ONE AND HALF TABLETS DAILY
     Route: 048
  3. SEROQUEL XR [Suspect]
     Route: 048
  4. SEROQUEL XR [Suspect]
     Route: 048

REACTIONS (2)
  - WRONG TECHNIQUE IN DRUG USAGE PROCESS [None]
  - ANGER [None]
